FAERS Safety Report 10901058 (Version 1)
Quarter: 2015Q1

REPORT INFORMATION
  Report Type: Spontaneous
  Country: CH (occurrence: CH)
  Receive Date: 20150310
  Receipt Date: 20150310
  Transmission Date: 20150721
  Serious: Yes (Hospitalization, Other)
  Sender: FDA-Public Use
  Company Number: CH-SA-2015SA028024

PATIENT
  Age: 69 Year
  Sex: Male

DRUGS (5)
  1. VENLAFAXINE [Suspect]
     Active Substance: VENLAFAXINE HYDROCHLORIDE
     Route: 048
     Dates: start: 2012
  2. VALERIANA COMP [Concomitant]
     Active Substance: HOMEOPATHICS
     Route: 048
     Dates: start: 2012, end: 20140411
  3. STILNOX [Suspect]
     Active Substance: ZOLPIDEM TARTRATE
     Route: 048
     Dates: start: 2012
  4. MIRTAZAPINE. [Suspect]
     Active Substance: MIRTAZAPINE
     Route: 048
     Dates: start: 2012
  5. VENLAFAXINE [Suspect]
     Active Substance: VENLAFAXINE HYDROCHLORIDE
     Dosage: DOSE INCREASED
     Route: 048
     Dates: end: 20140727

REACTIONS (4)
  - Death of relative [Unknown]
  - Suicide attempt [Recovered/Resolved]
  - Obsessive-compulsive disorder [Unknown]
  - Aggression [Unknown]

NARRATIVE: CASE EVENT DATE: 20140407
